FAERS Safety Report 4549651-4 (Version None)
Quarter: 2005Q1

REPORT INFORMATION
  Report Type: 
  Country: None (occurrence: None)
  Receive Date: 20050111
  Receipt Date: 20041217
  Transmission Date: 20050727
  Serious: Yes (Hospitalization)
  Sender: FDA-Public Use
  Company Number: JP-GLAXOSMITHKLINE-B0362542A

PATIENT
  Age: 64 Year
  Sex: Female

DRUGS (8)
  1. PAXIL [Suspect]
     Indication: SCHIZOPHRENIA
     Dosage: 10MG TWICE PER DAY
     Route: 048
     Dates: start: 20041202, end: 20041213
  2. DEPAS [Concomitant]
     Indication: INSOMNIA
     Dosage: .5MG PER DAY
     Route: 048
  3. RIZE [Concomitant]
     Indication: SCHIZOPHRENIA
     Dosage: 10MG PER DAY
     Route: 048
  4. LENDORMIN [Concomitant]
     Indication: SCHIZOPHRENIA
     Dosage: .5MG PER DAY
     Route: 048
  5. MAGNESIUM OXIDE [Concomitant]
     Indication: CONSTIPATION
     Dosage: 1G PER DAY
     Route: 048
  6. MARZULENE S [Concomitant]
     Indication: STOMACH DISCOMFORT
     Dosage: 2.01G PER DAY
     Route: 048
  7. GASMOTIN [Concomitant]
     Indication: STOMACH DISCOMFORT
     Dosage: 15MG PER DAY
     Route: 048
  8. LEXOTAN [Concomitant]
     Indication: SCHIZOPHRENIA
     Dosage: 5MG PER DAY
     Route: 048

REACTIONS (9)
  - ABNORMAL DREAMS [None]
  - APNOEA [None]
  - CONVULSION [None]
  - DEPRESSED LEVEL OF CONSCIOUSNESS [None]
  - HYPONATRAEMIA [None]
  - INAPPROPRIATE ANTIDIURETIC HORMONE SECRETION [None]
  - RESTLESSNESS [None]
  - SLEEP DISORDER [None]
  - SPEECH DISORDER [None]
